FAERS Safety Report 5740255-4 (Version None)
Quarter: 2008Q2

REPORT INFORMATION
  Report Type: 
  Country: None (occurrence: None)
  Receive Date: 20080516
  Receipt Date: 20080507
  Transmission Date: 20081010
  Serious: Yes (Other)
  Sender: FDA-Public Use
  Company Number: US-JNJFOC-20080502135

PATIENT
  Sex: Female
  Weight: 81.65 kg

DRUGS (9)
  1. DURAGESIC-100 [Suspect]
     Dosage: TWO 12.5 UG PATCHES
     Route: 062
  2. DURAGESIC-100 [Suspect]
     Route: 062
  3. DURAGESIC-100 [Suspect]
     Indication: PAIN
     Route: 062
  4. FENTANYL TRANSDERMAL SYSTEM [Suspect]
     Indication: PAIN
     Route: 062
  5. PERCOCET [Concomitant]
     Indication: PAIN
     Dosage: 10/325 MG AS NEEDED
     Route: 048
  6. SOMA [Concomitant]
     Indication: MUSCLE SPASMS
     Route: 048
  7. ROBAXIN [Concomitant]
     Indication: MUSCLE SPASMS
     Dosage: ONE TABLET FOUR TIMES A DAY AS NEEDED
     Route: 048
  8. ELAVIL [Concomitant]
     Indication: NERVOUSNESS
     Route: 048
  9. ELAVIL [Concomitant]
     Indication: SLEEP DISORDER
     Dosage: TWO 50 MG TABLETS
     Route: 048

REACTIONS (9)
  - DRUG EFFECT DECREASED [None]
  - DYSKINESIA [None]
  - EAR DISCOMFORT [None]
  - ERYTHEMA [None]
  - FALL [None]
  - INCORRECT DRUG ADMINISTRATION DURATION [None]
  - INTERVERTEBRAL DISC PROTRUSION [None]
  - PAIN [None]
  - PARAESTHESIA [None]
